FAERS Safety Report 4862623-5 (Version None)
Quarter: 2005Q4

REPORT INFORMATION
  Report Type: 
  Country: None (occurrence: None)
  Receive Date: 20051221
  Receipt Date: 20051209
  Transmission Date: 20060501
  Serious: Yes (Other)
  Sender: FDA-Public Use
  Company Number: CA-BRISTOL-MYERS SQUIBB COMPANY-13217211

PATIENT
  Age: 81 Year
  Sex: Male

DRUGS (11)
  1. TEQUIN [Suspect]
     Route: 048
  2. ZITHROMAX [Suspect]
  3. ADALAT [Concomitant]
  4. CARDURA [Concomitant]
  5. DIABETA [Concomitant]
  6. EPREX [Concomitant]
  7. GLUCOPHAGE [Concomitant]
     Route: 048
  8. LASIX [Concomitant]
  9. NOVASEN [Concomitant]
  10. PANTOPRAZOLE SODIUM [Concomitant]
  11. TEVETEN [Concomitant]

REACTIONS (2)
  - BLOOD CREATININE INCREASED [None]
  - HYPOGLYCAEMIA [None]
